FAERS Safety Report 21274315 (Version 2)
Quarter: 2022Q3

REPORT INFORMATION
  Report Type: Report from Study
  Country: GB (occurrence: GB)
  Receive Date: 20220831
  Receipt Date: 20220928
  Transmission Date: 20221027
  Serious: Yes (Death, Other)
  Sender: FDA-Public Use
  Company Number: GB-ABBVIE-22K-167-4523255-00

PATIENT
  Age: 46 Year
  Sex: Female

DRUGS (6)
  1. RITONAVIR [Suspect]
     Active Substance: RITONAVIR
     Indication: HIV infection
     Route: 048
  2. PREZISTA [Concomitant]
     Active Substance: DARUNAVIR ETHANOLATE
     Indication: Product used for unknown indication
     Route: 065
  3. NORVIR [Concomitant]
     Active Substance: RITONAVIR
     Indication: Product used for unknown indication
  4. DARUNAVIR+COBICISTAT +EMTRICITABINE+TENOFOVIR ALAFENAMIDE [Concomitant]
     Indication: Product used for unknown indication
     Dosage: 1160 MILLIGRAM
     Route: 048
     Dates: start: 20210416
  5. EMTRICITABINE+TENOVFOVIR ALAFENAMIDE (DESCOVY, DVY) [Concomitant]
     Indication: Product used for unknown indication
     Route: 065
  6. PREZISTA [Concomitant]
     Active Substance: DARUNAVIR ETHANOLATE
     Indication: Product used for unknown indication
     Dosage: 800 MILLIGRAM
     Route: 048
     Dates: start: 20210416

REACTIONS (3)
  - Abortion spontaneous [Fatal]
  - Abortion spontaneous [Fatal]
  - Maternal exposure during pregnancy [Unknown]

NARRATIVE: CASE EVENT DATE: 20210602
